FAERS Safety Report 9698142 (Version 2)
Quarter: 2014Q2

REPORT INFORMATION
  Report Type: Spontaneous
  Country: US (occurrence: US)
  Receive Date: 20131120
  Receipt Date: 20140516
  Transmission Date: 20141212
  Serious: Yes (Life-Threatening, Hospitalization)
  Sender: FDA-Public Use
  Company Number: US-BAYER-2013-139813

PATIENT
  Age: 21 Year
  Sex: Female
  Weight: 92.52 kg

DRUGS (12)
  1. MIRENA [Suspect]
     Indication: CONTRACEPTION
     Dosage: 20 MCG/24HR, CONT
     Route: 015
     Dates: start: 20110531, end: 20110902
  2. AMOXICILLIN [Concomitant]
     Indication: PHARYNGITIS STREPTOCOCCAL
     Dosage: UNK
     Dates: start: 20110615
  3. METRONIDAZOLE [Concomitant]
     Dosage: 500 MG, UNK
  4. VOLTAREN [Concomitant]
     Indication: MUSCULOSKELETAL PAIN
     Dosage: 1 %, UNK
     Dates: start: 20110602, end: 20110720
  5. CYCLOBENZAPRINE [Concomitant]
     Dosage: 10 MG, UNK
     Dates: start: 20110602, end: 20110720
  6. ASMANEX [Concomitant]
     Indication: ASTHMA
     Dosage: 220 MCG
     Dates: start: 20110727
  7. PROAIR HFA [Concomitant]
     Indication: ASTHMA
     Dosage: 108 MCG
     Dates: start: 20110727
  8. IBUPROFEN [Concomitant]
     Dosage: 800 MG, UNK
  9. ADVAIR [Concomitant]
     Indication: ASTHMA
     Dosage: 100-50 MCG
     Dates: start: 2011, end: 20110727
  10. ALBUTEROL [Concomitant]
     Indication: ASTHMA
     Dosage: UNK
     Dates: start: 2011, end: 20110727
  11. OMEPRAZOLE [Concomitant]
     Indication: GASTROOESOPHAGEAL REFLUX DISEASE
     Dosage: 40 MG, UNK
     Dates: start: 201106, end: 20110825
  12. LORATADINE [Concomitant]
     Indication: ASTHMA
     Dosage: UNK
     Dates: start: 20110602, end: 20110825

REACTIONS (9)
  - Embedded device [None]
  - Injury [None]
  - Emotional distress [None]
  - Abdominal pain lower [None]
  - General physical health deterioration [None]
  - Anxiety [None]
  - Anhedonia [None]
  - Device defective [None]
  - Pelvic pain [None]
